FAERS Safety Report 7727656-X (Version None)
Quarter: 2011Q3

REPORT INFORMATION
  Report Type: 
  Country: None (occurrence: None)
  Receive Date: 20110902
  Receipt Date: 20110822
  Transmission Date: 20111222
  Serious: Yes (Hospitalization)
  Sender: FDA-Public Use
  Company Number: FR-NOVOPROD-332426

PATIENT

DRUGS (3)
  1. METFORMIN HCL [Concomitant]
     Dosage: UNK
     Route: 048
     Dates: start: 20030101, end: 20110713
  2. VICTOZA [Suspect]
     Indication: TYPE 2 DIABETES MELLITUS
     Dosage: 1.2 MG, QD
     Route: 058
     Dates: start: 20110614, end: 20110623
  3. REPAGLINIDE [Concomitant]
     Dosage: UNK
     Route: 048
     Dates: start: 20100601, end: 20110713

REACTIONS (3)
  - VOMITING [None]
  - DEHYDRATION [None]
  - RENAL FAILURE ACUTE [None]
